FAERS Safety Report 24615408 (Version 1)
Quarter: 2024Q4

REPORT INFORMATION
  Report Type: Spontaneous
  Country: US (occurrence: US)
  Receive Date: 20241113
  Receipt Date: 20241113
  Transmission Date: 20250114
  Serious: No
  Sender: SANOFI AVENTIS
  Company Number: US-SA-2024SA324094

PATIENT
  Age: 74 Year
  Sex: Male
  Weight: 76 kg

DRUGS (1)
  1. REZUROCK [Suspect]
     Active Substance: BELUMOSUDIL
     Indication: Graft versus host disease
     Dosage: 200 MG, QD
     Route: 048
     Dates: start: 20241017

REACTIONS (3)
  - Blood glucose increased [Unknown]
  - Anxiety [Unknown]
  - Emotional disorder [Unknown]

NARRATIVE: CASE EVENT DATE: 20241001
